FAERS Safety Report 5412458-X (Version None)
Quarter: 2007Q3

REPORT INFORMATION
  Report Type: 
  Country: None (occurrence: None)
  Receive Date: 20070813
  Receipt Date: 20070809
  Transmission Date: 20080115
  Serious: Yes (Hospitalization)
  Sender: FDA-Public Use
  Company Number: JP-BRISTOL-MYERS SQUIBB COMPANY-13874078

PATIENT
  Sex: Female

DRUGS (1)
  1. MAXIPIME [Suspect]
     Indication: INFECTION PROPHYLAXIS
     Route: 042
     Dates: start: 20070726, end: 20070729

REACTIONS (1)
  - STEVENS-JOHNSON SYNDROME [None]
